FAERS Safety Report 16770444 (Version 5)
Quarter: 2021Q4

REPORT INFORMATION
  Report Type: Spontaneous
  Country: US (occurrence: US)
  Receive Date: 20190904
  Receipt Date: 20211004
  Transmission Date: 20220303
  Serious: Yes (Other)
  Sender: FDA-Public Use
  Company Number: US-GILEAD-2019-0425770

PATIENT
  Age: 43 Year
  Sex: Male
  Weight: 104.76 kg

DRUGS (132)
  1. TRUVADA [Suspect]
     Active Substance: EMTRICITABINE\TENOFOVIR DISOPROXIL FUMARATE
     Indication: HIV infection
     Dosage: UNK
     Route: 048
     Dates: start: 20130204, end: 20161104
  2. TRUVADA [Suspect]
     Active Substance: EMTRICITABINE\TENOFOVIR DISOPROXIL FUMARATE
     Dosage: UNK
     Route: 048
     Dates: start: 20060425, end: 20161215
  3. TRUVADA [Suspect]
     Active Substance: EMTRICITABINE\TENOFOVIR DISOPROXIL FUMARATE
     Dosage: UNK
     Route: 048
     Dates: start: 20060425, end: 20140327
  4. TRUVADA [Suspect]
     Active Substance: EMTRICITABINE\TENOFOVIR DISOPROXIL FUMARATE
     Dosage: UNK
     Route: 048
     Dates: start: 20140327, end: 20160204
  5. TRUVADA [Suspect]
     Active Substance: EMTRICITABINE\TENOFOVIR DISOPROXIL FUMARATE
     Dosage: UNK
     Route: 048
     Dates: start: 20160204, end: 20161221
  6. GENVOYA [Concomitant]
     Active Substance: COBICISTAT\ELVITEGRAVIR\EMTRICITABINE\TENOFOVIR ALAFENAMIDE FUMARATE
  7. BIKTARVY [Concomitant]
     Active Substance: BICTEGRAVIR SODIUM\EMTRICITABINE\TENOFOVIR ALAFENAMIDE FUMARATE
  8. TAB A VITE [Concomitant]
  9. VITAMIN D2 [Concomitant]
     Active Substance: ERGOCALCIFEROL
  10. VITAMIN B12 [Concomitant]
     Active Substance: CYANOCOBALAMIN
  11. ACETAMINOPHEN [Concomitant]
     Active Substance: ACETAMINOPHEN
  12. AMITRIPTYLINE [Concomitant]
     Active Substance: AMITRIPTYLINE
  13. AMOXICILLIN [Concomitant]
     Active Substance: AMOXICILLIN
  14. ASPIRIN [Concomitant]
     Active Substance: ASPIRIN
  15. ATORVASTATIN [Concomitant]
     Active Substance: ATORVASTATIN
  16. BUMEX [Concomitant]
     Active Substance: BUMETANIDE
  17. CORTISONE [Concomitant]
     Active Substance: CORTISONE
  18. CRESTOR [Concomitant]
     Active Substance: ROSUVASTATIN CALCIUM
  19. HEPARIN [Concomitant]
     Active Substance: HEPARIN SODIUM
  20. LEVOFLOXACIN [Concomitant]
     Active Substance: LEVOFLOXACIN
  21. METHYLPREDNISOLONE [Concomitant]
     Active Substance: METHYLPREDNISOLONE
  22. PREDNISONE [Concomitant]
     Active Substance: PREDNISONE
  23. TRIAMCINOLONE [Concomitant]
     Active Substance: TRIAMCINOLONE
  24. ISENTRESS [Concomitant]
     Active Substance: RALTEGRAVIR POTASSIUM
  25. NORVIR [Concomitant]
     Active Substance: RITONAVIR
  26. PREZISTA [Concomitant]
     Active Substance: DARUNAVIR ETHANOLATE
  27. TIVICAY [Concomitant]
     Active Substance: DOLUTEGRAVIR SODIUM
  28. GENTAMICIN [Concomitant]
     Active Substance: GENTAMICIN
  29. CAPTOPRIL [Concomitant]
     Active Substance: CAPTOPRIL
  30. LIPITOR [Concomitant]
     Active Substance: ATORVASTATIN CALCIUM
  31. MAALOX PLUS [ALGELDRATE;DIMETICONE;MAGNESIUM HYDROXIDE] [Concomitant]
  32. DIAZEPAM [Concomitant]
     Active Substance: DIAZEPAM
  33. FAMOTIDINE [Concomitant]
     Active Substance: FAMOTIDINE
  34. ENOXAPARIN [Concomitant]
     Active Substance: ENOXAPARIN
  35. NAPROXEN [Concomitant]
     Active Substance: NAPROXEN
  36. DICLOFENAC SODIUM [Concomitant]
     Active Substance: DICLOFENAC SODIUM
  37. PRILOSEC [Concomitant]
     Active Substance: OMEPRAZOLE MAGNESIUM
  38. PROTONIX [Concomitant]
     Active Substance: PANTOPRAZOLE SODIUM
  39. ZANTAC [Concomitant]
     Active Substance: RANITIDINE HYDROCHLORIDE
  40. ZOFRAN [Concomitant]
     Active Substance: ONDANSETRON HYDROCHLORIDE
  41. CALCIUM ANTACID [Concomitant]
     Active Substance: CALCIUM CARBONATE
  42. CATAPRES [Concomitant]
     Active Substance: CLONIDINE HYDROCHLORIDE
  43. LOVAZA [Concomitant]
     Active Substance: OMEGA-3-ACID ETHYL ESTERS
  44. AMLODIPINE BESYLATE [Concomitant]
     Active Substance: AMLODIPINE BESYLATE
  45. METOPROLOL SUCCINATE [Concomitant]
     Active Substance: METOPROLOL SUCCINATE
  46. TENORMIN [Concomitant]
     Active Substance: ATENOLOL
  47. INDOMETHACIN [Concomitant]
     Active Substance: INDOMETHACIN
  48. HYDROCHLOROTHIAZIDE [Concomitant]
     Active Substance: HYDROCHLOROTHIAZIDE
  49. BENAZEPRIL [Concomitant]
     Active Substance: BENAZEPRIL HYDROCHLORIDE
  50. CHLORTHALIDONE [Concomitant]
     Active Substance: CHLORTHALIDONE
  51. FLONASE ALLERGY RELIEF [Concomitant]
     Active Substance: FLUTICASONE PROPIONATE
  52. SIMETHICONE (DIMETHICONE) [Concomitant]
     Active Substance: DIMETHICONE
  53. NIASPAN [Concomitant]
     Active Substance: NIACIN
  54. LOPRESSOR [Concomitant]
     Active Substance: METOPROLOL TARTRATE
  55. ACETAMINOPHEN\HYDROCODONE [Concomitant]
     Active Substance: ACETAMINOPHEN\HYDROCODONE
  56. ACETAMINOPHEN\OXYCODONE HYDROCHLORIDE [Concomitant]
     Active Substance: ACETAMINOPHEN\OXYCODONE HYDROCHLORIDE
  57. CLARITIN [Concomitant]
     Active Substance: LORATADINE
  58. PERMETHRIN [Concomitant]
     Active Substance: PERMETHRIN
  59. COREG [Concomitant]
     Active Substance: CARVEDILOL
  60. PLAVIX [Concomitant]
     Active Substance: CLOPIDOGREL BISULFATE
  61. SOMA [Concomitant]
     Active Substance: CARISOPRODOL
  62. HYDROXYZINE [Concomitant]
     Active Substance: HYDROXYZINE HYDROCHLORIDE
  63. LINDANE [Concomitant]
     Active Substance: LINDANE
  64. AMMONIUM LACTATE [Concomitant]
     Active Substance: AMMONIUM LACTATE
  65. SELENIUM SULFIDE [Concomitant]
     Active Substance: SELENIUM SULFIDE
  66. VIBRAMYCIN [DOXYCYCLINE HYCLATE] [Concomitant]
  67. ALLOPURINOL [Concomitant]
     Active Substance: ALLOPURINOL
  68. CEPHALEXIN [Concomitant]
     Active Substance: CEPHALEXIN
  69. SOOLANTRA [Concomitant]
     Active Substance: IVERMECTIN
  70. NITROGLYCERIN [Concomitant]
     Active Substance: NITROGLYCERIN
  71. KETOCONAZOLE [Concomitant]
     Active Substance: KETOCONAZOLE
  72. TOBRAMYCIN AND DEXAMETHASONE [Concomitant]
     Active Substance: DEXAMETHASONE\TOBRAMYCIN
  73. MAPAP [Concomitant]
     Active Substance: ACETAMINOPHEN
  74. POLYETHYLENE GLYCOL 3350 [Concomitant]
     Active Substance: POLYETHYLENE GLYCOL 3350
  75. CEFTRIAXONE [Concomitant]
     Active Substance: CEFTRIAXONE
  76. MUCINEX [Concomitant]
     Active Substance: GUAIFENESIN
  77. TRAMADOL [Concomitant]
     Active Substance: TRAMADOL
  78. TESSALON [Concomitant]
     Active Substance: BENZONATATE
  79. NICOTINE [Concomitant]
     Active Substance: NICOTINE
  80. TAMIFLU [Concomitant]
     Active Substance: OSELTAMIVIR PHOSPHATE
  81. NITROSTAT [Concomitant]
     Active Substance: NITROGLYCERIN
  82. COLCHICINE [Concomitant]
     Active Substance: COLCHICINE
  83. Q-TUSSIN DM [Concomitant]
  84. BETAMETHASONE DIPROPIONATE [Concomitant]
     Active Substance: BETAMETHASONE DIPROPIONATE
  85. FLUTICASONE PROPIONATE [Concomitant]
     Active Substance: FLUTICASONE PROPIONATE
  86. PERCOCET [Concomitant]
     Active Substance: ACETAMINOPHEN\OXYCODONE HYDROCHLORIDE
  87. ZOLPIDEM TARTRATE [Concomitant]
     Active Substance: ZOLPIDEM TARTRATE
  88. MORPHINE SULFATE [Concomitant]
     Active Substance: MORPHINE SULFATE
  89. LYRICA [Concomitant]
     Active Substance: PREGABALIN
  90. FLEXERIL [Concomitant]
     Active Substance: CYCLOBENZAPRINE HYDROCHLORIDE
  91. COLCRYS [Concomitant]
     Active Substance: COLCHICINE
  92. ATROPINE\DIPHENOXYLATE [Concomitant]
     Active Substance: ATROPINE\DIPHENOXYLATE
  93. ACETAMINOPHEN [Concomitant]
     Active Substance: ACETAMINOPHEN
  94. STROMECTOL [Concomitant]
     Active Substance: IVERMECTIN
  95. NICODERM CQ [Concomitant]
     Active Substance: NICOTINE
  96. DIPHENHYDRAMINE [Concomitant]
     Active Substance: DIPHENHYDRAMINE
  97. ROBITUSSIN DM [Concomitant]
     Active Substance: DEXTROMETHORPHAN HYDROBROMIDE\GUAIFENESIN
  98. A+D ORIGINAL [Concomitant]
  99. SARNA [CAMPHOR;MENTHOL] [Concomitant]
  100. BENADRYL ITCH STOPPING GEL MAXIMUM STRENGTH [Concomitant]
  101. DOCUSATE [Concomitant]
     Active Substance: DOCUSATE
  102. HYDROMORPHONE [Concomitant]
     Active Substance: HYDROMORPHONE
  103. DILAUDID [Concomitant]
     Active Substance: HYDROMORPHONE HYDROCHLORIDE
  104. ATARAX [Concomitant]
     Active Substance: HYDROXYZINE HYDROCHLORIDE
  105. VISTARIL [Concomitant]
     Active Substance: HYDROXYZINE PAMOATE
  106. COLACE [Concomitant]
     Active Substance: DOCUSATE SODIUM
  107. ATROPINE SULFATE [Concomitant]
     Active Substance: ATROPINE SULFATE
  108. GABAPENTIN [Concomitant]
     Active Substance: GABAPENTIN
  109. BUMETANIDE [Concomitant]
     Active Substance: BUMETANIDE
  110. MINOCYCLINE [Concomitant]
     Active Substance: MINOCYCLINE HYDROCHLORIDE
  111. MILK OF MAGNESIA [Concomitant]
     Active Substance: MAGNESIUM HYDROXIDE
  112. NARCAN [Concomitant]
     Active Substance: NALOXONE HYDROCHLORIDE
  113. NORCO [Concomitant]
     Active Substance: ACETAMINOPHEN\HYDROCODONE BITARTRATE
  114. MS CONTIN [Concomitant]
     Active Substance: MORPHINE SULFATE
  115. ZEMURON [Concomitant]
     Active Substance: ROCURONIUM BROMIDE
  116. FENTANYL CITRATE [Concomitant]
     Active Substance: FENTANYL CITRATE
  117. VERSED [Concomitant]
     Active Substance: MIDAZOLAM HYDROCHLORIDE
  118. K-DUR [Concomitant]
     Active Substance: POTASSIUM CHLORIDE
  119. THORAZINE [Concomitant]
     Active Substance: CHLORPROMAZINE
  120. HABITROL [Concomitant]
     Active Substance: NICOTINE
  121. REGLAN [Concomitant]
     Active Substance: METOCLOPRAMIDE HYDROCHLORIDE
  122. OXYCONTIN [Concomitant]
     Active Substance: OXYCODONE HYDROCHLORIDE
  123. MARCAINE WITH EPINEPHRINE [Concomitant]
     Active Substance: BUPIVACAINE HYDROCHLORIDE\EPINEPHRINE BITARTRATE
  124. CYKLOKAPRON [Concomitant]
     Active Substance: TRANEXAMIC ACID
  125. PROSTIGMIN [NEOSTIGMINE BROMIDE] [Concomitant]
  126. ROBINUL [Concomitant]
     Active Substance: GLYCOPYRROLATE
  127. HIBISTAT [CHLORHEXIDINE GLUCONATE] [Concomitant]
  128. VEMLIDY [Concomitant]
     Active Substance: TENOFOVIR ALAFENAMIDE FUMARATE
  129. CLOTRIMAZOLE [Concomitant]
     Active Substance: CLOTRIMAZOLE
  130. ZYRTEC [Concomitant]
     Active Substance: CETIRIZINE HYDROCHLORIDE
  131. SODIUM CHLORIDE [Concomitant]
     Active Substance: SODIUM CHLORIDE
  132. ISOSORBIDE MONONITRATE [Concomitant]
     Active Substance: ISOSORBIDE MONONITRATE

REACTIONS (20)
  - Chronic kidney disease [Unknown]
  - Chronic kidney disease [Unknown]
  - Chronic kidney disease [Not Recovered/Not Resolved]
  - Chronic kidney disease [Not Recovered/Not Resolved]
  - Hip arthroplasty [Unknown]
  - End stage renal disease [Unknown]
  - Osteonecrosis [Unknown]
  - Osteonecrosis [Unknown]
  - Osteonecrosis [Unknown]
  - Osteonecrosis [Unknown]
  - Bone density decreased [Not Recovered/Not Resolved]
  - Tooth loss [Unknown]
  - Pain [Unknown]
  - Emotional distress [Unknown]
  - Anxiety [Unknown]
  - Anhedonia [Unknown]
  - Economic problem [Unknown]
  - Blood creatinine increased [Unknown]
  - Renal impairment [Unknown]
  - Condition aggravated [Unknown]

NARRATIVE: CASE EVENT DATE: 20130801
